FAERS Safety Report 6360618-6 (Version None)
Quarter: 2009Q3

REPORT INFORMATION
  Report Type: 
  Country: None (occurrence: None)
  Receive Date: 20090915
  Receipt Date: 20090831
  Transmission Date: 20100115
  Serious: Yes (Hospitalization, Other)
  Sender: FDA-Public Use
  Company Number: AUR-APL-2009-00555

PATIENT
  Age: 50 Year
  Sex: Female

DRUGS (4)
  1. AMOXICILLIN [Suspect]
     Dates: start: 20070629
  2. FELODIPINE [Concomitant]
  3. LEVOTHYROXINE SODIUM [Concomitant]
  4. GLYBURIDE AND METFORMIN HCL [Concomitant]

REACTIONS (32)
  - ALOPECIA [None]
  - ANAEMIA [None]
  - ANXIETY [None]
  - APHASIA [None]
  - BLOOD THYROID STIMULATING HORMONE INCREASED [None]
  - CHEST PAIN [None]
  - CONJUNCTIVAL HYPERAEMIA [None]
  - DYSPHAGIA [None]
  - DYSPNOEA [None]
  - ERYTHEMA MULTIFORME [None]
  - EXCORIATION [None]
  - HEPATITIS [None]
  - HYPERGLYCAEMIA [None]
  - HYPERPLASIA [None]
  - LEUKOCYTOSIS [None]
  - LUNG INFILTRATION [None]
  - LYMPH NODE PAIN [None]
  - LYMPHADENITIS [None]
  - MOUTH ULCERATION [None]
  - NECROSIS [None]
  - NIGHT SWEATS [None]
  - ODYNOPHAGIA [None]
  - OESOPHAGITIS [None]
  - OROPHARYNGEAL PAIN [None]
  - PERICARDIAL EFFUSION [None]
  - SINUS TACHYCARDIA [None]
  - STOMATITIS [None]
  - TACHYCARDIA [None]
  - TENDERNESS [None]
  - THROMBOCYTOSIS [None]
  - TONGUE DISCOLOURATION [None]
  - TONSILLAR HYPERTROPHY [None]
